FAERS Safety Report 25571844 (Version 1)
Quarter: 2025Q3

REPORT INFORMATION
  Report Type: Spontaneous
  Country: US (occurrence: US)
  Receive Date: 20250717
  Receipt Date: 20250717
  Transmission Date: 20251021
  Serious: Yes (Hospitalization, Other)
  Sender: GLAXOSMITHKLINE
  Company Number: US-GLAXOSMITHKLINE INC-US2025GSK090423

PATIENT
  Age: 41 Year
  Sex: Male

DRUGS (2)
  1. MEPOLIZUMAB [Suspect]
     Active Substance: MEPOLIZUMAB
     Indication: Chronic rhinosinusitis with nasal polyps
     Dosage: 100 MG, MO (3 DOSES)
  2. MEPOLIZUMAB [Suspect]
     Active Substance: MEPOLIZUMAB
     Dosage: 200 MG, MO

REACTIONS (5)
  - Dermatomyositis [Recovered/Resolved]
  - Myositis [Recovered/Resolved]
  - Interstitial lung disease [Recovered/Resolved]
  - Sjogren^s syndrome [Recovered/Resolved]
  - Acute respiratory failure [Recovered/Resolved]
